FAERS Safety Report 12269452 (Version 1)
Quarter: 2016Q2

REPORT INFORMATION
  Report Type: Spontaneous
  Country: SE (occurrence: SE)
  Receive Date: 20160414
  Receipt Date: 20160414
  Transmission Date: 20160815
  Serious: Yes (Hospitalization)
  Sender: FDA-Public Use
  Company Number: SE-TEVA-650847ISR

PATIENT
  Age: 86 Year
  Sex: Female

DRUGS (3)
  1. DULOXETINE. [Suspect]
     Active Substance: DULOXETINE
  2. CYMBALTA [Suspect]
     Active Substance: DULOXETINE HYDROCHLORIDE
  3. ENALAPRIL [Suspect]
     Active Substance: ENALAPRIL

REACTIONS (1)
  - Hyponatraemia [Recovered/Resolved]
